FAERS Safety Report 7016627-7 (Version None)
Quarter: 2010Q3

REPORT INFORMATION
  Report Type: 
  Country: None (occurrence: None)
  Receive Date: 20100927
  Receipt Date: 20100915
  Transmission Date: 20110219
  Serious: Yes (Hospitalization)
  Sender: FDA-Public Use
  Company Number: B0675837A

PATIENT
  Age: 67 Year
  Sex: Male

DRUGS (10)
  1. VALTREX [Suspect]
     Route: 048
     Dates: start: 20100801
  2. CELLCEPT [Suspect]
     Indication: PRODUCT USED FOR UNKNOWN INDICATION
     Route: 048
     Dates: start: 20100830
  3. PREDNISONE [Suspect]
     Route: 048
  4. POSACONAZOLE [Concomitant]
     Route: 048
  5. LITHIUM [Concomitant]
     Route: 048
  6. CITALOPRAM HYDROBROMIDE [Concomitant]
     Route: 048
  7. TOPAMAX [Concomitant]
     Route: 048
  8. PRAMIPEXOLE DIHYDROCHLORIDE [Concomitant]
     Route: 048
  9. AMLODIPINE [Concomitant]
     Route: 048
  10. NEXIUM [Concomitant]
     Route: 048

REACTIONS (3)
  - DIARRHOEA [None]
  - INFECTION [None]
  - SOMNOLENCE [None]
